FAERS Safety Report 6808837-6 (Version None)
Quarter: 2010Q2

REPORT INFORMATION
  Report Type: 
  Country: None (occurrence: None)
  Receive Date: 20100630
  Receipt Date: 20090920
  Transmission Date: 20101027
  Serious: Yes (Other)
  Sender: FDA-Public Use
  Company Number: US-PFIZER INC-2009251610

PATIENT
  Sex: Male
  Weight: 122 kg

DRUGS (8)
  1. TIKOSYN [Suspect]
     Indication: ATRIAL FIBRILLATION
     Dosage: UNK
     Dates: start: 20090622
  2. CITALOPRAM [Concomitant]
  3. DIGOXIN [Concomitant]
  4. METOPROLOL [Concomitant]
  5. WARFARIN [Concomitant]
  6. MAGNESIUM OXIDE [Concomitant]
  7. SIMVASTATIN [Concomitant]
  8. ACETYLSALICYLIC ACID [Concomitant]

REACTIONS (6)
  - ANGINA PECTORIS [None]
  - ANXIETY [None]
  - BALANCE DISORDER [None]
  - CONDITION AGGRAVATED [None]
  - INSOMNIA [None]
  - TREMOR [None]
